FAERS Safety Report 7320325-X (Version None)
Quarter: 2011Q1

REPORT INFORMATION
  Report Type: 
  Country: None (occurrence: None)
  Receive Date: 20110228
  Receipt Date: 20110218
  Transmission Date: 20110831
  Serious: Yes (Other)
  Sender: FDA-Public Use
  Company Number: US-ASTRAZENECA-2010SE25882

PATIENT
  Sex: Female

DRUGS (4)
  1. PRISTIQ [Suspect]
     Route: 048
     Dates: start: 20100401
  2. ATENOLOL [Suspect]
     Route: 065
  3. BENICAR HCT [Suspect]
     Dosage: UNKNOWN DOSE IN ABOUT EVERY ONE MONTH
     Route: 048
     Dates: start: 20100401
  4. ZOLOFT [Suspect]
     Route: 065

REACTIONS (2)
  - HYPERSOMNIA [None]
  - BLOOD PRESSURE INCREASED [None]
